FAERS Safety Report 6702949-3 (Version None)
Quarter: 2010Q2

REPORT INFORMATION
  Report Type: 
  Country: None (occurrence: None)
  Receive Date: 20100429
  Receipt Date: 20100421
  Transmission Date: 20101027
  Serious: Yes (Hospitalization, Other)
  Sender: FDA-Public Use
  Company Number: US-MERCK-0912USA02580

PATIENT
  Age: 66 Year
  Sex: Female
  Weight: 89 kg

DRUGS (2)
  1. FOSAMAX [Suspect]
     Indication: OSTEOPOROSIS
     Route: 048
     Dates: start: 19950101, end: 20080901
  2. COUMADIN [Concomitant]
     Indication: FACTOR V LEIDEN MUTATION
     Route: 065

REACTIONS (30)
  - ACUTE MYOCARDIAL INFARCTION [None]
  - ANAEMIA [None]
  - ANXIETY [None]
  - ARRHYTHMIA [None]
  - ARTHROPATHY [None]
  - CARDIAC FAILURE CONGESTIVE [None]
  - CELLULITIS [None]
  - DEPRESSION [None]
  - DEVICE RELATED INFECTION [None]
  - DRUG HYPERSENSITIVITY [None]
  - DYSLIPIDAEMIA [None]
  - EAR PAIN [None]
  - GLAUCOMA [None]
  - HYPERTENSION [None]
  - IMPAIRED HEALING [None]
  - INSOMNIA [None]
  - INTERNATIONAL NORMALISED RATIO INCREASED [None]
  - JOINT DISLOCATION [None]
  - MEDICAL DEVICE COMPLICATION [None]
  - MITRAL VALVE INCOMPETENCE [None]
  - MOUTH HAEMORRHAGE [None]
  - ORAL CAVITY FISTULA [None]
  - OSTEOARTHRITIS [None]
  - OSTEOMYELITIS [None]
  - OSTEONECROSIS [None]
  - PANIC ATTACK [None]
  - ROTATOR CUFF SYNDROME [None]
  - SECONDARY SEQUESTRUM [None]
  - TOOTH FRACTURE [None]
  - TOOTH LOSS [None]
